FAERS Safety Report 5652213-9 (Version None)
Quarter: 2008Q1

REPORT INFORMATION
  Report Type: 
  Country: None (occurrence: None)
  Receive Date: 20080304
  Receipt Date: 20080222
  Transmission Date: 20080703
  Serious: Yes (Other)
  Sender: FDA-Public Use
  Company Number: GXKR2008GB01977

PATIENT
  Age: 71 Year
  Sex: Male
  Weight: 80 kg

DRUGS (33)
  1. CLARITHROMYCIN [Suspect]
     Indication: LOWER RESPIRATORY TRACT INFECTION
     Dosage: 500 MG, QD, ORAL
     Route: 048
     Dates: start: 20080131, end: 20080205
  2. AMLODIPINE [Concomitant]
  3. AMOXICILLIN [Concomitant]
  4. ATENOLOL [Concomitant]
  5. BENDROFLUMETHAZINE (BENDROFLUMETHAZINE) [Concomitant]
  6. CINNARIZINE (CINNARIZINE) [Concomitant]
  7. CIPROFLOXACIN [Concomitant]
  8. CLOPIDOGREL (CLOPIDOGTREL) [Concomitant]
  9. CO-AMOXICLAV (AMOXICILLIN, CLAVULANATE POTASSIUM) [Concomitant]
  10. CODEINE PHOSPHATE AND ACETAMINOPHEN [Concomitant]
  11. DAKTACORT (HYDROCORTISONE, MICONAZOLE NITRATE) [Concomitant]
  12. DICLOFENAC SODIUM [Concomitant]
  13. DIHYDROCODEINE COMPOUND [Concomitant]
  14. DIPROBASE CREAM (CETOMACROGOL, CETOSTEARYL ALCOHOL, PARAFFIN, LIQUID, [Concomitant]
  15. FLUTICASONE PROPIONATE [Concomitant]
  16. FOLIC ACID [Concomitant]
  17. HYDROCORTISONE [Concomitant]
  18. HYDROXYCHLOROQUINE SULFATE [Concomitant]
  19. LOSARTAN POTASSIUM [Concomitant]
  20. METHOTREXATE [Concomitant]
  21. MOVICOL (MACROGOL, POTASSIUM CHLORIDE, SODIUM BICARBONATE, SODIUM CHLO [Concomitant]
  22. NICOTINELL CLASSIC (NICOTINE) [Concomitant]
  23. OTOMIZE (DEXAMETHASONE, NEOMYCIN SULFATE) [Concomitant]
  24. OTOSPORIN (HYDROCORTISONE, NEOMYCIN SULFATE, POLYMYXIN B SULFATE) [Concomitant]
  25. OXERUTINS (TROXERUTIN) [Concomitant]
  26. PROCHLORPERAZINE MALEATE (PROCHLOPERAZINE MALEATE) [Concomitant]
  27. CINCHOCAINE HYDROCHLORIDE (CINCHOCAINE HYDROCHLORIDE) [Concomitant]
  28. SALBUTAMOL (SALBUTAMOL) [Concomitant]
  29. SIMVASTATIN [Concomitant]
  30. SODIUM AUROTHIOMALATE (SODIUM AUROTHIOMALATE) [Concomitant]
  31. SUDOCREM (BENZYL ALCOHOL, BENZYL BENZOATE, BENZYL CINNAMATE, LANOLIN, [Concomitant]
  32. TRAMADOL HCL [Concomitant]
  33. TRIMOVATE (CLOBETASONE BUTYRATE, NYSTATIN, OXYTETRACYCLINE CALCIUM) [Concomitant]

REACTIONS (6)
  - COLD SWEAT [None]
  - DIZZINESS [None]
  - MALAISE [None]
  - ORTHOSTATIC HYPOTENSION [None]
  - PRODUCTIVE COUGH [None]
  - REFUSAL OF TREATMENT BY PATIENT [None]
